FAERS Safety Report 4926654-9 (Version None)
Quarter: 2006Q1

REPORT INFORMATION
  Report Type: 
  Country: None (occurrence: None)
  Receive Date: 20060228
  Receipt Date: 20050518
  Transmission Date: 20060701
  Serious: No
  Sender: FDA-Public Use
  Company Number: US-GLAXOSMITHKLINE-A0559171A

PATIENT
  Sex: Male

DRUGS (2)
  1. LAMICTAL [Suspect]
     Indication: BIPOLAR DISORDER
     Dosage: 100MG TWICE PER DAY
     Route: 048
  2. INTERFERON [Concomitant]
     Dates: start: 20050301

REACTIONS (4)
  - DRY SKIN [None]
  - ECZEMA [None]
  - SKIN CHAPPED [None]
  - SKIN HAEMORRHAGE [None]
